FAERS Safety Report 19932563 (Version 1)
Quarter: 2021Q4

REPORT INFORMATION
  Report Type: Spontaneous
  Country: US (occurrence: US)
  Receive Date: 20211007
  Receipt Date: 20211007
  Transmission Date: 20220303
  Serious: Yes (Life-Threatening, Hospitalization, Disabling)
  Sender: FDA-Public Use
  Company Number: None

PATIENT
  Age: 28 Year
  Sex: Female
  Weight: 56.25 kg

DRUGS (8)
  1. CIPROFLOXACIN [Suspect]
     Active Substance: CIPROFLOXACIN
     Indication: Urinary tract infection
     Dosage: ?          QUANTITY:1 TABLET(S);
     Route: 048
     Dates: start: 20210828, end: 20210831
  2. BRAIN OCTANE [Concomitant]
  3. MAGNESIUM GLYCINATE [Concomitant]
     Active Substance: MAGNESIUM GLYCINATE
  4. OMEGA 3 LIQUID [Concomitant]
  5. OREGANO LEAF OIL [Concomitant]
     Active Substance: OREGANO LEAF OIL
  6. OREGANO TEA [Concomitant]
  7. TARAMIND [Concomitant]
  8. TEA TREE OIL [Concomitant]
     Active Substance: TEA TREE OIL

REACTIONS (13)
  - Hypoaesthesia [None]
  - Hypoaesthesia [None]
  - Hypoaesthesia [None]
  - Hypoaesthesia [None]
  - Pain [None]
  - Headache [None]
  - Headache [None]
  - Sensory disturbance [None]
  - Inflammation [None]
  - Fatigue [None]
  - Asthenia [None]
  - Palpitations [None]
  - Abdominal pain upper [None]

NARRATIVE: CASE EVENT DATE: 20210831
